FAERS Safety Report 8514901-6 (Version None)
Quarter: 2012Q3

REPORT INFORMATION
  Report Type: 
  Country: None (occurrence: None)
  Receive Date: 20120717
  Receipt Date: 20120702
  Transmission Date: 20120928
  Serious: Yes (Disabling, Other)
  Sender: FDA-Public Use
  Company Number: JP-ROCHE-1072950

PATIENT
  Sex: Male
  Weight: 58 kg

DRUGS (17)
  1. AVASTIN [Suspect]
     Dates: start: 20100218
  2. LUCENTIS [Suspect]
     Route: 050
     Dates: start: 20090625, end: 20090625
  3. AVASTIN [Suspect]
     Indication: AGE-RELATED MACULAR DEGENERATION
     Route: 031
     Dates: start: 20091001, end: 20091001
  4. LUCENTIS [Suspect]
     Indication: AGE-RELATED MACULAR DEGENERATION
     Route: 050
     Dates: start: 20090428, end: 20090428
  5. LUCENTIS [Suspect]
     Route: 050
     Dates: start: 20091211, end: 20091211
  6. THEOLONG [Concomitant]
  7. HUSCODE [Concomitant]
  8. LANSOPRAZOLE [Concomitant]
  9. AVASTIN [Suspect]
     Dates: start: 20100114, end: 20100114
  10. DIAMOX [Concomitant]
     Dates: start: 20090428, end: 20090625
  11. MUCODYNE [Concomitant]
  12. VISUDYNE [Suspect]
     Indication: AGE-RELATED MACULAR DEGENERATION
     Route: 041
     Dates: start: 20091016
  13. VISUDYNE [Suspect]
     Route: 042
     Dates: start: 20100122, end: 20100122
  14. CATALIN [Concomitant]
  15. LEVOFLOXACIN [Concomitant]
     Dates: start: 20090428, end: 20090626
  16. LUCENTIS [Suspect]
     Route: 050
     Dates: start: 20090528, end: 20090528
  17. MUCOSOLVAN [Concomitant]

REACTIONS (3)
  - RETINAL HAEMORRHAGE [None]
  - RETINAL PIGMENT EPITHELIAL TEAR [None]
  - CHOROIDAL NEOVASCULARISATION [None]
